FAERS Safety Report 9786491 (Version 1)
Quarter: 2013Q4

REPORT INFORMATION
  Report Type: Spontaneous
  Country: FR (occurrence: FR)
  Receive Date: 20131227
  Receipt Date: 20131227
  Transmission Date: 20140711
  Serious: Yes (Hospitalization)
  Sender: FDA-Public Use
  Company Number: FR-JNJFOC-20131212351

PATIENT
  Age: 68 Year
  Sex: Male

DRUGS (2)
  1. DOXORUBICIN HYDROCHLORIDE (CAELYX) [Suspect]
     Indication: PLASMA CELL MYELOMA
     Route: 042
     Dates: start: 20130613, end: 20130711
  2. ENDOXAN [Suspect]
     Indication: PLASMA CELL MYELOMA
     Route: 042
     Dates: start: 20130613, end: 20130711

REACTIONS (5)
  - Aphthous stomatitis [Recovered/Resolved]
  - Palmar-plantar erythrodysaesthesia syndrome [Recovered/Resolved]
  - Anal ulcer [Recovered/Resolved]
  - Agranulocytosis [Recovering/Resolving]
  - Depression [Recovering/Resolving]
